FAERS Safety Report 24259940 (Version 1)
Quarter: 2024Q3

REPORT INFORMATION
  Report Type: Spontaneous
  Country: US (occurrence: None)
  Receive Date: 20240827
  Receipt Date: 20240827
  Transmission Date: 20241017
  Serious: No
  Sender: Public
  Company Number: None

PATIENT
  Age: 41 Year
  Sex: Male

DRUGS (1)
  1. NUCALA [Suspect]
     Active Substance: MEPOLIZUMAB
     Dosage: 100 MG/ML Q4WEEKS SUBCUTANEOUS?
     Route: 058

REACTIONS (7)
  - Pruritus [None]
  - Rash [None]
  - Skin discolouration [None]
  - Arthralgia [None]
  - Fatigue [None]
  - Thirst [None]
  - Vision blurred [None]

NARRATIVE: CASE EVENT DATE: 20240804
